FAERS Safety Report 21057151 (Version 1)
Quarter: 2022Q3

REPORT INFORMATION
  Report Type: Spontaneous
  Country: US (occurrence: US)
  Receive Date: 20220708
  Receipt Date: 20220708
  Transmission Date: 20221027
  Serious: No
  Sender: FDA-Public Use
  Company Number: US-BAYER-2022A094635

PATIENT
  Age: 60 Year
  Sex: Male

DRUGS (2)
  1. ASPIRIN [Suspect]
     Active Substance: ASPIRIN
     Indication: Neuralgia
  2. ALEVE [Suspect]
     Active Substance: NAPROXEN SODIUM
     Indication: Neuralgia

REACTIONS (1)
  - Drug ineffective [None]
